FAERS Safety Report 4915841-1 (Version None)
Quarter: 2006Q1

REPORT INFORMATION
  Report Type: 
  Country: None (occurrence: None)
  Receive Date: 20060214
  Receipt Date: 20060206
  Transmission Date: 20060701
  Serious: Yes (Death, Hospitalization, Other)
  Sender: FDA-Public Use
  Company Number: 163-20785-06010593

PATIENT
  Age: 59 Year
  Sex: Female

DRUGS (17)
  1. THALOMID [Suspect]
     Indication: GLIOMA
     Dosage: 200 MG, DAILY, ORAL
     Route: 048
     Dates: start: 20051227, end: 20060107
  2. IRINOTECAN HCL [Suspect]
     Indication: GLIOMA
     Dosage: 236 MG, INTRAVENOUS
     Route: 042
     Dates: start: 20051227, end: 20060103
  3. PROZAC [Concomitant]
  4. SYNTHROID [Concomitant]
  5. TRIAMTERENE [Concomitant]
  6. HYDROCHLOROTHIAZIDE [Concomitant]
  7. LESCOL [Concomitant]
  8. K-DUR 10 [Concomitant]
  9. TEGRETOL [Concomitant]
  10. CARDIZEM [Concomitant]
  11. DITROPAN [Concomitant]
  12. KEPPRA [Concomitant]
  13. DECADRON [Concomitant]
  14. PREVACID [Concomitant]
  15. LEVAQUIN [Concomitant]
  16. WARFARIN [Concomitant]
  17. LOPERAMIDE [Concomitant]

REACTIONS (12)
  - AGRANULOCYTOSIS [None]
  - CARDIO-RESPIRATORY ARREST [None]
  - DEEP VEIN THROMBOSIS [None]
  - DEHYDRATION [None]
  - DIARRHOEA [None]
  - FATIGUE [None]
  - HAEMOGLOBIN DECREASED [None]
  - NEUTROPENIA [None]
  - PLATELET COUNT DECREASED [None]
  - PULMONARY EMBOLISM [None]
  - SUDDEN DEATH [None]
  - WHITE BLOOD CELL COUNT DECREASED [None]
